FAERS Safety Report 8587764-0 (Version None)
Quarter: 2012Q3

REPORT INFORMATION
  Report Type: 
  Country: None (occurrence: None)
  Receive Date: 20120813
  Receipt Date: 20120807
  Transmission Date: 20120928
  Serious: No
  Sender: FDA-Public Use
  Company Number: US-009507513-1208USA003547

PATIENT

DRUGS (13)
  1. ALPHAGAN P [Concomitant]
  2. NIASPAN [Concomitant]
  3. VENTOLIN [Concomitant]
  4. SPIRIVA [Concomitant]
  5. SINGULAIR [Suspect]
     Indication: ASTHMA
     Dosage: 10 MG, QD
     Route: 048
     Dates: start: 20120401
  6. TRAVATAN Z [Concomitant]
  7. LEVOTHYROXINE SODIUM [Concomitant]
  8. LISINOPRIL [Concomitant]
  9. AVODART [Concomitant]
  10. PULMICORT [Concomitant]
  11. RHINOCORT [Concomitant]
  12. CITALOPRA [Concomitant]
  13. LIPITOR [Concomitant]

REACTIONS (1)
  - DRUG EFFECT DECREASED [None]
